FAERS Safety Report 15904978 (Version 2)
Quarter: 2020Q3

REPORT INFORMATION
  Report Type: Other
  Country: FR (occurrence: FR)
  Receive Date: 20190204
  Receipt Date: 20200819
  Transmission Date: 20201102
  Serious: Yes (Hospitalization, Other)
  Sender: FDA-Public Use
  Company Number: FR-ROCHE-2259396

PATIENT
  Age: 67 Year
  Sex: Male
  Weight: 80 kg

DRUGS (5)
  1. DEXAMETHASONE. [Concomitant]
     Active Substance: DEXAMETHASONE
     Route: 065
     Dates: start: 20110508, end: 20110618
  2. ELTROMBOPAG [Concomitant]
     Active Substance: ELTROMBOPAG
     Route: 065
     Dates: start: 20120221, end: 20120418
  3. RITUXIMAB. [Suspect]
     Active Substance: RITUXIMAB
     Indication: IMMUNE THROMBOCYTOPENIA
     Dosage: DATE OF LAST DOSE PRIOR TO SAE: 25/JUL/2011
     Route: 042
     Dates: start: 20110704
  4. ROMIPLOSTIM [Concomitant]
     Active Substance: ROMIPLOSTIM
     Route: 065
     Dates: start: 20111031
  5. IMUREL [Concomitant]
     Active Substance: AZATHIOPRINE SODIUM
     Route: 065
     Dates: end: 20121002

REACTIONS (6)
  - Acute kidney injury [Recovered/Resolved]
  - Off label use [Unknown]
  - Oedema peripheral [Recovering/Resolving]
  - Product use in unapproved indication [Unknown]
  - Cardiac failure [Recovered/Resolved]
  - Skin infection [Recovering/Resolving]

NARRATIVE: CASE EVENT DATE: 20110903
